FAERS Safety Report 8780173 (Version 1)
Quarter: 2012Q4

REPORT INFORMATION
  Report Type: Spontaneous
  Country: US (occurrence: None)
  Receive Date: 20120831
  Receipt Date: 20120831
  Transmission Date: 20130627
  Serious: Yes (Other)
  Sender: FDA-Public Use
  Company Number: None

PATIENT
  Age: 76 Year
  Sex: Female
  Weight: 80.29 kg

DRUGS (1)
  1. CEPHALEXIN [Suspect]
     Route: 048
     Dates: start: 20120516, end: 20120530

REACTIONS (2)
  - Urticaria [None]
  - Rash [None]
